FAERS Safety Report 13003152 (Version 5)
Quarter: 2018Q1

REPORT INFORMATION
  Report Type: Report from Study
  Country: US (occurrence: US)
  Receive Date: 20161206
  Receipt Date: 20180124
  Transmission Date: 20180508
  Serious: No
  Sender: FDA-Public Use
  Company Number: US-INCYTE CORPORATION-2016IN007353

PATIENT

DRUGS (11)
  1. AMBIEN CR [Concomitant]
     Active Substance: ZOLPIDEM TARTRATE
     Indication: SLEEP DISORDER
     Dosage: 6.25 MG, QHS
     Route: 065
     Dates: start: 20170822
  2. LISINOPRIL. [Concomitant]
     Active Substance: LISINOPRIL
     Indication: BLOOD PRESSURE ABNORMAL
     Dosage: 2.5 MG, QD
     Route: 065
     Dates: start: 20170912, end: 20180109
  3. SONATA                             /00061001/ [Concomitant]
     Active Substance: CARISOPRODOL
     Indication: SLEEP DISORDER
     Dosage: 5 MG, QHS
     Route: 065
     Dates: start: 20170803
  4. ST. JOHN^S WORT                    /01166801/ [Concomitant]
     Active Substance: ST. JOHN^S WORT
     Indication: AFFECTIVE DISORDER
     Dosage: 300 MG, BID
     Route: 065
     Dates: start: 20140512
  5. JAKAFI [Suspect]
     Active Substance: RUXOLITINIB
     Indication: POLYCYTHAEMIA VERA
     Dosage: 5 MG, BID
     Route: 048
     Dates: start: 20151210, end: 20151210
  6. JAKAFI [Suspect]
     Active Substance: RUXOLITINIB
     Dosage: 5 MG, BID
     Route: 048
     Dates: start: 20160929, end: 20161019
  7. DESYREL [Concomitant]
     Active Substance: TRAZODONE HYDROCHLORIDE
     Indication: SLEEP DISORDER
     Dosage: 100 MG, QHS
     Route: 065
     Dates: start: 20161211
  8. ROZEREM [Concomitant]
     Active Substance: RAMELTEON
     Indication: INSOMNIA
     Dosage: 8 MG, QHS
     Route: 065
     Dates: start: 20170821
  9. GABAPENTIN. [Concomitant]
     Active Substance: GABAPENTIN
     Indication: RESTLESS LEGS SYNDROME
     Dosage: 600 MG, QD
     Route: 065
     Dates: start: 20140228, end: 20171221
  10. RANITIDINE. [Concomitant]
     Active Substance: RANITIDINE
     Indication: REFLUX LARYNGITIS
     Dosage: 150 MG, QD
     Route: 065
     Dates: start: 20171213
  11. ZITHROMAX [Concomitant]
     Active Substance: AZITHROMYCIN DIHYDRATE
     Indication: SINUS CONGESTION
     Dosage: 250 MG, QD
     Dates: start: 20161231, end: 20170105

REACTIONS (1)
  - Gastrooesophageal reflux disease [Recovered/Resolved]

NARRATIVE: CASE EVENT DATE: 201610
